FAERS Safety Report 20744585 (Version 1)
Quarter: 2022Q2

REPORT INFORMATION
  Report Type: Spontaneous
  Country: DE (occurrence: DE)
  Receive Date: 20220425
  Receipt Date: 20220425
  Transmission Date: 20220721
  Serious: Yes (Hospitalization, Other)
  Sender: FDA-Public Use
  Company Number: None

PATIENT
  Age: 3 Year
  Sex: Female

DRUGS (1)
  1. TACROLIMUS [Suspect]
     Active Substance: TACROLIMUS
     Indication: Liver transplant
     Dosage: UNKNOWN FREQ.
     Route: 065

REACTIONS (4)
  - Leukoencephalopathy [Recovered/Resolved]
  - Epstein-Barr virus antibody positive [Unknown]
  - Neurotoxicity [Unknown]
  - Ataxia [Unknown]
